FAERS Safety Report 24346814 (Version 1)
Quarter: 2024Q3

REPORT INFORMATION
  Report Type: Spontaneous
  Country: US (occurrence: US)
  Receive Date: 20240921
  Receipt Date: 20240921
  Transmission Date: 20241017
  Serious: No
  Sender: LUPIN
  Company Number: US-LUPIN PHARMACEUTICALS INC.-2024-09121

PATIENT

DRUGS (2)
  1. VORICONAZOLE [Suspect]
     Active Substance: VORICONAZOLE
     Indication: Pneumonia fungal
     Dosage: UNK
     Route: 065
  2. LIPITOR [Concomitant]
     Active Substance: ATORVASTATIN CALCIUM
     Indication: Blood cholesterol increased
     Dosage: UNK
     Route: 065

REACTIONS (7)
  - Alopecia [Unknown]
  - Weight decreased [Unknown]
  - Hair growth abnormal [Unknown]
  - Paraesthesia [Unknown]
  - Impaired healing [Unknown]
  - Visual impairment [Unknown]
  - Peripheral coldness [Unknown]
